FAERS Safety Report 14954255 (Version 1)
Quarter: 2018Q2

REPORT INFORMATION
  Report Type: Spontaneous
  Country: US (occurrence: US)
  Receive Date: 20180509
  Receipt Date: 20180509
  Transmission Date: 20180711
  Serious: Yes (Hospitalization)
  Sender: FDA-Public Use
  Company Number: None

PATIENT
  Sex: Female

DRUGS (40)
  1. NIFEDIPINE. [Concomitant]
     Active Substance: NIFEDIPINE
  2. A-HYDROCORT [Concomitant]
     Active Substance: HYDROCORTISONE SODIUM SUCCINATE
  3. ROSUVASTATIN. [Concomitant]
     Active Substance: ROSUVASTATIN
  4. WARFARIN [Concomitant]
     Active Substance: WARFARIN
  5. PRAVACHOL [Concomitant]
     Active Substance: PRAVASTATIN SODIUM
  6. ZOLOFT [Concomitant]
     Active Substance: SERTRALINE HYDROCHLORIDE
  7. AZITHROMYCIN ANHYDROUS. [Concomitant]
     Active Substance: AZITHROMYCIN ANHYDROUS
  8. PATOPRAZOLE [Concomitant]
  9. ONETOUCH [Concomitant]
  10. VIRT-CAPS [Concomitant]
     Active Substance: ASCORBIC ACID\BIOTIN\CALCIUM PANTOTHENATE\CYANOCOBALAMIN\FOLIC ACID\NIACINAMIDE\PYRIDOXINE HYDROCHLORIDE\RIBOFLAVIN\THIAMINE MONONITRATE
  11. CRESTOR [Concomitant]
     Active Substance: ROSUVASTATIN CALCIUM
  12. CALCITRIOL. [Concomitant]
     Active Substance: CALCITRIOL
  13. PROGRAF [Concomitant]
     Active Substance: TACROLIMUS\TACROLIMUS ANHYDROUS
  14. RENAL SFTGLS [Concomitant]
  15. TACROLIMUS. [Suspect]
     Active Substance: TACROLIMUS
     Indication: LUNG TRANSPLANT
     Route: 048
     Dates: start: 20150912
  16. TACROLIMUS. [Suspect]
     Active Substance: TACROLIMUS
     Indication: LUNG TRANSPLANT
     Route: 048
     Dates: start: 20150912
  17. CARVEDILOL. [Concomitant]
     Active Substance: CARVEDILOL
  18. HUMALOG [Concomitant]
     Active Substance: INSULIN LISPRO
  19. ONDANSETRON [Concomitant]
     Active Substance: ONDANSETRON
  20. RENVELA [Concomitant]
     Active Substance: SEVELAMER CARBONATE
  21. FERROUS SULF [Concomitant]
     Active Substance: FERROUS SULFATE
  22. TYLENOL [Concomitant]
     Active Substance: ACETAMINOPHEN
  23. VITAMIN D [Concomitant]
     Active Substance: CHOLECALCIFEROL
  24. SMZ/TMP [Concomitant]
     Active Substance: SULFAMETHOXAZOLE\TRIMETHOPRIM
  25. CHOLESTYRAM [Concomitant]
     Active Substance: CHOLESTYRAMINE
  26. PRANDIN [Concomitant]
     Active Substance: REPAGLINIDE
  27. OYST CAL [Concomitant]
  28. PREDNISONE. [Concomitant]
     Active Substance: PREDNISONE
  29. CLONIDINE. [Concomitant]
     Active Substance: CLONIDINE
  30. LOPERAMIDE [Concomitant]
     Active Substance: LOPERAMIDE
  31. SODIUM BICAR [Concomitant]
  32. NEPHROCAPS [Concomitant]
     Active Substance: ASCORBIC ACID\BIOTIN\CYANOCOBALAMIN\FOLIC ACID\NIACIN\PANTOTHENIC ACID\PYRIDOXINE\RIBOFLAVIN\THIAMINE
  33. SERTRALINE [Concomitant]
     Active Substance: SERTRALINE HYDROCHLORIDE
  34. LORATADINE. [Concomitant]
     Active Substance: LORATADINE
  35. MUCINEX [Concomitant]
     Active Substance: GUAIFENESIN
  36. METOPROL TAR [Concomitant]
  37. LISINOPRIL. [Concomitant]
     Active Substance: LISINOPRIL
  38. DIPHEN/ATROP [Concomitant]
     Active Substance: ATROPINE SULFATE\DIPHENOXYLATE
  39. CELLCEPT [Concomitant]
     Active Substance: MYCOPHENOLATE MOFETIL\MYCOPHENOLATE MOFETIL HYDROCHLORIDE
  40. LANTUS [Concomitant]
     Active Substance: INSULIN GLARGINE

REACTIONS (2)
  - Anaemia [None]
  - Fall [None]
